FAERS Safety Report 23375130 (Version 1)
Quarter: 2024Q1

REPORT INFORMATION
  Report Type: Spontaneous
  Country: US (occurrence: US)
  Receive Date: 20240106
  Receipt Date: 20240106
  Transmission Date: 20240409
  Serious: No
  Sender: FDA-Public Use
  Company Number: US-TEVA-VS-3141555

PATIENT
  Age: 62 Year

DRUGS (2)
  1. UZEDY [Suspect]
     Active Substance: RISPERIDONE
     Indication: Product used for unknown indication
     Dosage: 1ST 2 TREATMENTS
     Route: 065
  2. UZEDY [Suspect]
     Active Substance: RISPERIDONE
     Dosage: 3RD TREATMENT
     Route: 065

REACTIONS (1)
  - Skin hyperpigmentation [Unknown]
